FAERS Safety Report 19133094 (Version 3)
Quarter: 2022Q2

REPORT INFORMATION
  Report Type: Report from Study
  Country: ES (occurrence: ES)
  Receive Date: 20210414
  Receipt Date: 20220630
  Transmission Date: 20220721
  Serious: Yes (Life-Threatening, Hospitalization, Other)
  Sender: FDA-Public Use
  Company Number: ES-AUROBINDO-AUR-APL-2021-015275

PATIENT
  Age: 78 Year
  Sex: Female

DRUGS (1)
  1. ERTAPENEM [Suspect]
     Active Substance: ERTAPENEM
     Indication: Arteriovenous fistula site infection
     Dosage: 500 MILLIGRAM, ONCE A DAY
     Route: 042
     Dates: start: 20180801, end: 20180804

REACTIONS (3)
  - Status epilepticus [Recovered/Resolved]
  - Speech disorder [Recovered/Resolved]
  - Confusional state [Recovered/Resolved]

NARRATIVE: CASE EVENT DATE: 20180804
